FAERS Safety Report 11927978 (Version 1)
Quarter: 2016Q1

REPORT INFORMATION
  Report Type: Spontaneous
  Country: US (occurrence: US)
  Receive Date: 20160119
  Receipt Date: 20160119
  Transmission Date: 20160526
  Serious: No
  Sender: FDA-Public Use
  Company Number: US-PFIZER INC-2015471309

PATIENT
  Age: 43 Year
  Sex: Female
  Weight: 90.72 kg

DRUGS (1)
  1. PRISTIQ EXTENDED RELEASE [Suspect]
     Active Substance: DESVENLAFAXINE SUCCINATE
     Indication: ADJUSTMENT DISORDER WITH DEPRESSED MOOD
     Dosage: 50 MG, UNK
     Route: 048

REACTIONS (1)
  - Vision blurred [Recovered/Resolved]
